FAERS Safety Report 7222679-1 (Version None)
Quarter: 2011Q1

REPORT INFORMATION
  Report Type: 
  Country: None (occurrence: None)
  Receive Date: 20110106
  Receipt Date: 20110106
  Transmission Date: 20110831
  Serious: Yes (Other)
  Sender: FDA-Public Use
  Company Number: None

PATIENT
  Age: 60 Year
  Sex: Male
  Weight: 155.1302 kg

DRUGS (1)
  1. LEVOFLOXACIN [Suspect]
     Dosage: 500 MG EVERY DAY BY MOUTH
     Route: 048
     Dates: start: 20100203, end: 20100301

REACTIONS (1)
  - OEDEMA PERIPHERAL [None]
